FAERS Safety Report 8370751-5 (Version None)
Quarter: 2012Q2

REPORT INFORMATION
  Report Type: 
  Country: None (occurrence: None)
  Receive Date: 20120518
  Receipt Date: 20120327
  Transmission Date: 20120825
  Serious: Yes (Hospitalization)
  Sender: FDA-Public Use
  Company Number: US-ALEXION-A201200475

PATIENT
  Sex: Male

DRUGS (3)
  1. COUMADIN [Suspect]
     Indication: HAEMOLYTIC URAEMIC SYNDROME
  2. HEPARIN [Suspect]
     Indication: HAEMOLYTIC URAEMIC SYNDROME
  3. SOLIRIS [Suspect]
     Indication: HAEMOLYTIC URAEMIC SYNDROME
     Dosage: 900 MG, UNK
     Route: 042
     Dates: start: 20120306, end: 20120306

REACTIONS (8)
  - PLATELET COUNT DECREASED [None]
  - BLOOD CREATININE ABNORMAL [None]
  - HAEMOPTYSIS [None]
  - INTRACARDIAC THROMBUS [None]
  - VENA CAVA THROMBOSIS [None]
  - EPISTAXIS [None]
  - RED BLOOD CELL SCHISTOCYTES PRESENT [None]
  - HAEMOGLOBIN DECREASED [None]
